FAERS Safety Report 7301366-5 (Version None)
Quarter: 2011Q1

REPORT INFORMATION
  Report Type: 
  Country: None (occurrence: None)
  Receive Date: 20110113
  Receipt Date: 20100913
  Transmission Date: 20110831
  Serious: No
  Sender: FDA-Public Use
  Company Number: US-001297

PATIENT
  Sex: Male
  Weight: 35.8342 kg

DRUGS (2)
  1. KUVAN [Suspect]
     Indication: PHENYLKETONURIA
     Dosage: (700 MG QD ORAL) (2 TABLETS; FREQUENCY NOT REPORTED ORAL)
     Route: 048
     Dates: start: 20080101, end: 20080101
  2. KUVAN [Suspect]
     Indication: PHENYLKETONURIA
     Dosage: (700 MG QD ORAL) (2 TABLETS; FREQUENCY NOT REPORTED ORAL)
     Route: 048
     Dates: start: 20100908

REACTIONS (2)
  - ABDOMINAL PAIN UPPER [None]
  - ABDOMINAL DISCOMFORT [None]
